FAERS Safety Report 23526223 (Version 1)
Quarter: 2024Q1

REPORT INFORMATION
  Report Type: Spontaneous
  Country: US (occurrence: US)
  Receive Date: 20240215
  Receipt Date: 20240215
  Transmission Date: 20240410
  Serious: Yes (Other)
  Sender: FDA-Public Use
  Company Number: US-BRISTOL-MYERS SQUIBB COMPANY-2024-020295

PATIENT
  Age: 76 Year
  Sex: Male

DRUGS (2)
  1. LENALIDOMIDE [Suspect]
     Active Substance: LENALIDOMIDE
     Indication: Plasma cell myeloma
     Dosage: TAKE 1 CAPSULE (10 MG TOTAL) BY MOUTH DAILY.
     Route: 048
  2. MAGNESIUM CITRATE [Concomitant]
     Active Substance: MAGNESIUM CITRATE
     Indication: Product used for unknown indication
     Dosage: VERY ONCE IN A WHILE TAKES MAGNESIUM CITRATE EVERY NIGHT.

REACTIONS (7)
  - Transient ischaemic attack [Unknown]
  - Cerebrovascular accident [Unknown]
  - Constipation [Unknown]
  - Fatigue [Unknown]
  - Platelet count decreased [Unknown]
  - Hypothyroidism [Unknown]
  - Pain [Unknown]

NARRATIVE: CASE EVENT DATE: 20240201
